FAERS Safety Report 24028994 (Version 1)
Quarter: 2024Q2

REPORT INFORMATION
  Report Type: Other
  Country: NO (occurrence: NO)
  Receive Date: 20240628
  Receipt Date: 20240628
  Transmission Date: 20240716
  Serious: Yes (Other)
  Sender: FDA-Public Use
  Company Number: None

PATIENT

DRUGS (4)
  1. ADALIMUMAB [Suspect]
     Active Substance: ADALIMUMAB\ISOPROPYL ALCOHOL
     Indication: Rheumatoid arthritis
     Dosage: 1 DOSAGE FORM, EVERY 10 DAYS
     Route: 065
     Dates: end: 2024
  2. ARAVA [Suspect]
     Active Substance: LEFLUNOMIDE
     Indication: Rheumatoid arthritis
     Dosage: UNK
     Route: 048
     Dates: start: 2023, end: 202402
  3. VIMOVO [Concomitant]
     Active Substance: ESOMEPRAZOLE MAGNESIUM\NAPROXEN
     Indication: Product used for unknown indication
     Dosage: 1 DOSAGE FORM, Q12H
     Route: 065
  4. TIBOLON ARISTO [Concomitant]
     Indication: Product used for unknown indication
     Dosage: 2.5 MILLIGRAM, QD
     Route: 065

REACTIONS (6)
  - Skin odour abnormal [Unknown]
  - Hyperhidrosis [Recovering/Resolving]
  - Weight increased [Unknown]
  - Hypertension [Not Recovered/Not Resolved]
  - Rash [Recovering/Resolving]
  - Infection susceptibility increased [Recovering/Resolving]
